FAERS Safety Report 5358541-9 (Version None)
Quarter: 2007Q2

REPORT INFORMATION
  Report Type: 
  Country: None (occurrence: None)
  Receive Date: 20070613
  Receipt Date: 20070613
  Transmission Date: 20071010
  Serious: No
  Sender: FDA-Public Use
  Company Number: None

PATIENT
  Age: 64 Year
  Sex: Male
  Weight: 94 kg

DRUGS (1)
  1. ACTIVASE [Suspect]
     Indication: PULMONARY EMBOLISM
     Dosage: 0.08MG/KG/HR, WITH TAPER INFUSION INTRA-ARTER
     Route: 013
     Dates: start: 20070101, end: 20070101

REACTIONS (3)
  - CEREBRAL HAEMORRHAGE [None]
  - DIZZINESS [None]
  - VISUAL DISTURBANCE [None]
